FAERS Safety Report 6635656-6 (Version None)
Quarter: 2010Q1

REPORT INFORMATION
  Report Type: 
  Country: None (occurrence: None)
  Receive Date: 20100315
  Receipt Date: 20100305
  Transmission Date: 20100710
  Serious: Yes (Death, Hospitalization, Other)
  Sender: FDA-Public Use
  Company Number: US-AMGEN-QUU391159

PATIENT
  Sex: Female
  Weight: 67.2 kg

DRUGS (22)
  1. NPLATE [Suspect]
     Indication: IDIOPATHIC THROMBOCYTOPENIC PURPURA
     Route: 058
     Dates: start: 20081212, end: 20090416
  2. CORTICOSTEROIDS [Concomitant]
     Dates: start: 20080404
  3. COUMADIN [Concomitant]
  4. AMLODIPINE [Concomitant]
  5. RENAGEL [Concomitant]
  6. COREG [Concomitant]
  7. ZOCOR [Concomitant]
  8. LEVOTHYROXINE SODIUM [Concomitant]
  9. LISINOPRIL [Concomitant]
  10. NAMENDA [Concomitant]
  11. OMEPRAZOLE [Concomitant]
  12. NEPHROCAPS [Concomitant]
  13. SENNA [Concomitant]
  14. REGLAN [Concomitant]
  15. COLACE [Concomitant]
  16. HYDRALAZINE HCL [Concomitant]
  17. ESTRADIOL [Concomitant]
  18. MIRALAX [Concomitant]
  19. TUMS [Concomitant]
  20. EFFEXOR [Concomitant]
  21. VITAMIN C [Concomitant]
  22. ARICEPT [Concomitant]

REACTIONS (12)
  - ABDOMINAL PAIN UPPER [None]
  - ACTIVITIES OF DAILY LIVING IMPAIRED [None]
  - ANAEMIA [None]
  - ANTICOAGULATION DRUG LEVEL ABOVE THERAPEUTIC [None]
  - ASPIRATION [None]
  - CONVULSION [None]
  - DEMENTIA ALZHEIMER'S TYPE [None]
  - FALL [None]
  - HYPOPHAGIA [None]
  - OEDEMA PERIPHERAL [None]
  - RESPIRATORY DISTRESS [None]
  - SUBDURAL HAEMATOMA [None]
